FAERS Safety Report 4915708-9 (Version None)
Quarter: 2006Q1

REPORT INFORMATION
  Report Type: 
  Country: None (occurrence: None)
  Receive Date: 20060214
  Receipt Date: 20060203
  Transmission Date: 20060701
  Serious: Yes (Other)
  Sender: FDA-Public Use
  Company Number: 2006017216

PATIENT
  Age: 35 Year
  Sex: Male

DRUGS (1)
  1. UNISOM [Suspect]
     Indication: SUICIDE ATTEMPT
     Dosage: 7 SLEEPGELS ONCE, ORAL
     Route: 048
     Dates: start: 20060202, end: 20060202

REACTIONS (2)
  - OVERDOSE [None]
  - SUICIDE ATTEMPT [None]
